FAERS Safety Report 17228169 (Version 2)
Quarter: 2020Q1

REPORT INFORMATION
  Report Type: Report from Study
  Country: CA (occurrence: CA)
  Receive Date: 20200103
  Receipt Date: 20200211
  Transmission Date: 20200409
  Serious: Yes (Other)
  Sender: FDA-Public Use
  Company Number: CA-ROCHE-2512966

PATIENT
  Age: 19 Year
  Sex: Male

DRUGS (2)
  1. AMLODIPINE BESILATE [Concomitant]
     Active Substance: AMLODIPINE BESYLATE
     Dosage: ONGOING YES
     Route: 065
     Dates: start: 201910
  2. OCREVUS [Suspect]
     Active Substance: OCRELIZUMAB
     Indication: RELAPSING-REMITTING MULTIPLE SCLEROSIS
     Dosage: 300 MG AT DAY 0 AND 14, THEN 600 MG EVERY 6 MONTH. ;ONGOING: YES
     Route: 042
     Dates: start: 20190725

REACTIONS (7)
  - Hypertension [Recovered/Resolved]
  - Dysphagia [Unknown]
  - Lower respiratory tract congestion [Unknown]
  - Balance disorder [Not Recovered/Not Resolved]
  - Nasal congestion [Unknown]
  - Muscular weakness [Unknown]
  - Sinusitis [Recovered/Resolved]

NARRATIVE: CASE EVENT DATE: 20190807
